FAERS Safety Report 19921180 (Version 2)
Quarter: 2021Q4

REPORT INFORMATION
  Report Type: Spontaneous
  Country: ES (occurrence: ES)
  Receive Date: 20211006
  Receipt Date: 20211025
  Transmission Date: 20220303
  Serious: Yes (Hospitalization)
  Sender: FDA-Public Use
  Company Number: ES-TEVA-2021-ES-1960955

PATIENT
  Age: 26 Year
  Sex: Female

DRUGS (1)
  1. DULOXETINE [Suspect]
     Active Substance: DULOXETINE
     Indication: Antidepressant therapy
     Route: 065

REACTIONS (3)
  - Colitis microscopic [Recovering/Resolving]
  - Metabolic acidosis [Recovering/Resolving]
  - Hypokalaemia [Recovering/Resolving]
